FAERS Safety Report 10836863 (Version 1)
Quarter: 2015Q1

REPORT INFORMATION
  Report Type: Spontaneous
  Country: US (occurrence: None)
  Receive Date: 20150218
  Receipt Date: 20150218
  Transmission Date: 20150721
  Serious: Yes (Other)
  Sender: FDA-Public Use
  Company Number: 2015-000248

PATIENT
  Age: 33 Year
  Sex: Female

DRUGS (1)
  1. ASACOL [Suspect]
     Active Substance: MESALAMINE
     Route: 048
     Dates: start: 201207, end: 201501

REACTIONS (1)
  - Leukaemia [None]

NARRATIVE: CASE EVENT DATE: 201310
